FAERS Safety Report 12977203 (Version 2)
Quarter: 2017Q1

REPORT INFORMATION
  Report Type: Spontaneous
  Country: DE (occurrence: DE)
  Receive Date: 20161128
  Receipt Date: 20170119
  Transmission Date: 20170428
  Serious: Yes (Other)
  Sender: FDA-Public Use
  Company Number: DE-AMGEN-DEUSP2016166477

PATIENT
  Sex: Female

DRUGS (2)
  1. PROLIA [Suspect]
     Active Substance: DENOSUMAB
     Indication: OSTEOPOROSIS
     Dosage: UNK
     Route: 065
     Dates: start: 201505
  2. CALCIUM [Concomitant]
     Active Substance: CALCIUM

REACTIONS (8)
  - Lower respiratory tract infection [Unknown]
  - Hypersensitivity [Recovered/Resolved]
  - Arthralgia [Unknown]
  - Cystitis [Unknown]
  - Balance disorder [Recovered/Resolved]
  - Noninfective gingivitis [Unknown]
  - Periodontal inflammation [Unknown]
  - Myalgia [Unknown]

NARRATIVE: CASE EVENT DATE: 2016
